FAERS Safety Report 22079786 (Version 2)
Quarter: 2025Q1

REPORT INFORMATION
  Report Type: Spontaneous
  Country: US (occurrence: US)
  Receive Date: 20230309
  Receipt Date: 20250225
  Transmission Date: 20250408
  Serious: No
  Sender: PFIZER
  Company Number: US-PFIZER INC-2020305925

PATIENT
  Age: 78 Year
  Sex: Female
  Weight: 90.26 kg

DRUGS (1)
  1. IBRANCE [Suspect]
     Active Substance: PALBOCICLIB
     Indication: Breast cancer stage IV
     Route: 048
     Dates: start: 201605

REACTIONS (3)
  - Illness [Unknown]
  - Stress [Unknown]
  - Mental disorder [Unknown]
